FAERS Safety Report 18813102 (Version 1)
Quarter: 2021Q1

REPORT INFORMATION
  Report Type: Spontaneous
  Country: GB (occurrence: GB)
  Receive Date: 20210131
  Receipt Date: 20210131
  Transmission Date: 20210419
  Serious: Yes (Other)
  Sender: FDA-Public Use
  Company Number: GB-BEH-2021127539

PATIENT
  Sex: Female

DRUGS (1)
  1. FACTOR VIII RECOMBINANT (INN) [Suspect]
     Active Substance: ANTIHEMOPHILIC FACTOR, HUMAN RECOMBINANT
     Indication: HAEMOPHILIA
     Dosage: UNK
     Route: 065

REACTIONS (2)
  - Pain [Unknown]
  - Haemorrhage [Unknown]
